FAERS Safety Report 5951212-7 (Version None)
Quarter: 2008Q4

REPORT INFORMATION
  Report Type: 
  Country: None (occurrence: None)
  Receive Date: 20081022
  Receipt Date: 20080812
  Transmission Date: 20090506
  Serious: No
  Sender: FDA-Public Use
  Company Number: ALL1-2008-02278

PATIENT
  Age: 55 Year
  Sex: Female
  Weight: 54.4 kg

DRUGS (2)
  1. VYVANSE [Suspect]
     Indication: ATTENTION DEFICIT/HYPERACTIVITY DISORDER
     Dosage: 20 MG, 1X/DAY:QD, ORAL
     Route: 048
     Dates: start: 20080701, end: 20080701
  2. LEXAPRO [Concomitant]

REACTIONS (3)
  - ANGER [None]
  - ANOREXIA [None]
  - SOMNOLENCE [None]
